FAERS Safety Report 6892319-X (Version None)
Quarter: 2010Q3

REPORT INFORMATION
  Report Type: 
  Country: None (occurrence: None)
  Receive Date: 20100731
  Receipt Date: 20080317
  Transmission Date: 20110219
  Serious: No
  Sender: FDA-Public Use
  Company Number: US-PFIZER INC-2008011210

PATIENT
  Sex: Male
  Weight: 77.7 kg

DRUGS (2)
  1. NORVASC [Suspect]
     Indication: HYPERTENSION
     Route: 048
     Dates: start: 20040311
  2. LIPITOR [Suspect]
     Indication: HYPERLIPIDAEMIA
     Route: 048
     Dates: start: 20031204

REACTIONS (5)
  - BACK PAIN [None]
  - DEHYDRATION [None]
  - NIGHTMARE [None]
  - POLLAKIURIA [None]
  - THERAPEUTIC RESPONSE DELAYED [None]
